FAERS Safety Report 6026204-2 (Version None)
Quarter: 2008Q4

REPORT INFORMATION
  Report Type: 
  Country: None (occurrence: None)
  Receive Date: 20081230
  Receipt Date: 20081215
  Transmission Date: 20090506
  Serious: Yes (Congenital Anomaly)
  Sender: FDA-Public Use
  Company Number: 2008S1022309

PATIENT

DRUGS (3)
  1. FLUOXETINE [Suspect]
     Indication: POST VIRAL FATIGUE SYNDROME
     Dosage: 40 MG TRANSPLACENTAL
     Route: 064
  2. CEFALEXIN [Concomitant]
  3. GAVISCON [Concomitant]

REACTIONS (3)
  - AGITATION NEONATAL [None]
  - MATERNAL DRUGS AFFECTING FOETUS [None]
  - TALIPES [None]
